FAERS Safety Report 8265486-3 (Version None)
Quarter: 2012Q2

REPORT INFORMATION
  Report Type: 
  Country: None (occurrence: None)
  Receive Date: 20120406
  Receipt Date: 20120326
  Transmission Date: 20120825
  Serious: Yes (Other)
  Sender: FDA-Public Use
  Company Number: US-PFIZER INC-2012077872

PATIENT
  Sex: Male
  Weight: 68 kg

DRUGS (4)
  1. OMEPRAZOLE [Concomitant]
     Indication: GASTROOESOPHAGEAL REFLUX DISEASE
     Dosage: 20 MG, DAILY
  2. SUTENT [Suspect]
     Indication: THYMOMA MALIGNANT RECURRENT
     Dosage: 50 MG, DAILY (4 WEEKS ON THERAPY AND 2 WEEKS OFF OF THERAPY)
     Route: 048
     Dates: start: 20120201, end: 20120305
  3. MESTINON [Concomitant]
     Indication: MYASTHENIA GRAVIS
     Dosage: 180 MG, DAILY
  4. SUTENT [Interacting]
     Dosage: 50 MG, DAILY (4 WEEKS ON THERAPY AND 2 WEEKS OFF OF THERAPY)
     Route: 048
     Dates: start: 20120301

REACTIONS (22)
  - NAUSEA [None]
  - SKIN EXFOLIATION [None]
  - TONGUE BLISTERING [None]
  - HEADACHE [None]
  - OROPHARYNGEAL BLISTERING [None]
  - PAIN OF SKIN [None]
  - BLOOD BILIRUBIN INCREASED [None]
  - ARTHRALGIA [None]
  - LIVER FUNCTION TEST ABNORMAL [None]
  - MYALGIA [None]
  - HAEMATOCRIT DECREASED [None]
  - INFLUENZA LIKE ILLNESS [None]
  - WHITE BLOOD CELL COUNT DECREASED [None]
  - RED BLOOD CELL COUNT DECREASED [None]
  - FATIGUE [None]
  - DIARRHOEA [None]
  - HEPATIC ENZYME INCREASED [None]
  - HYPERAESTHESIA [None]
  - DRY SKIN [None]
  - BLOOD ALKALINE PHOSPHATASE INCREASED [None]
  - BLOOD UREA INCREASED [None]
  - DRUG INTERACTION [None]
